FAERS Safety Report 6574541-5 (Version None)
Quarter: 2010Q1

REPORT INFORMATION
  Report Type: 
  Country: None (occurrence: None)
  Receive Date: 20100209
  Receipt Date: 20090708
  Transmission Date: 20100710
  Serious: No
  Sender: FDA-Public Use
  Company Number: A0795902A

PATIENT
  Sex: Male

DRUGS (2)
  1. PAXIL CR [Suspect]
     Indication: PANIC DISORDER
     Dosage: 40MG PER DAY
     Route: 048
     Dates: start: 20070101
  2. NO CONCURRENT MEDICATION [Concomitant]

REACTIONS (3)
  - DEPRESSED MOOD [None]
  - DRUG INEFFECTIVE [None]
  - NIGHTMARE [None]
